FAERS Safety Report 9138826 (Version 1)
Quarter: 2013Q1

REPORT INFORMATION
  Report Type: Spontaneous
  Country: US (occurrence: US)
  Receive Date: 20130305
  Receipt Date: 20130305
  Transmission Date: 20140127
  Serious: Yes (Hospitalization, Other)
  Sender: FDA-Public Use
  Company Number: US-ENDO PHARMACEUTICALS INC.-PERC20120104

PATIENT
  Sex: Male

DRUGS (1)
  1. PERCOCET [Suspect]
     Indication: BACK INJURY
     Dosage: UNK

REACTIONS (5)
  - Intentional drug misuse [Recovered/Resolved]
  - Drug abuse [Recovered/Resolved]
  - Malaise [Recovered/Resolved]
  - Euphoric mood [Recovered/Resolved]
  - Withdrawal syndrome [Recovered/Resolved]
